FAERS Safety Report 7949234-X (Version None)
Quarter: 2011Q4

REPORT INFORMATION
  Report Type: 
  Country: None (occurrence: None)
  Receive Date: 20111130
  Receipt Date: 20111118
  Transmission Date: 20120403
  Serious: Yes (Hospitalization, Other)
  Sender: FDA-Public Use
  Company Number: FR-ROCHE-685801

PATIENT
  Sex: Female
  Weight: 53 kg

DRUGS (5)
  1. AVASTIN [Suspect]
     Indication: RENAL CELL CARCINOMA
     Route: 042
     Dates: start: 20090910, end: 20100129
  2. TEMSIROLIMUS [Suspect]
     Indication: RENAL CELL CARCINOMA
     Route: 042
     Dates: start: 20090910, end: 20100129
  3. AVASTIN [Suspect]
     Route: 042
  4. METHOTREXATE [Concomitant]
     Indication: RHEUMATOID ARTHRITIS
  5. TEMSIROLIMUS [Suspect]
     Route: 042

REACTIONS (3)
  - CARDIAC FAILURE [None]
  - PYREXIA [None]
  - LUNG DISORDER [None]
